FAERS Safety Report 18180101 (Version 3)
Quarter: 2021Q1

REPORT INFORMATION
  Report Type: Spontaneous
  Country: US (occurrence: US)
  Receive Date: 20200821
  Receipt Date: 20210315
  Transmission Date: 20210419
  Serious: Yes (Other)
  Sender: FDA-Public Use
  Company Number: US-PFIZER INC-2020323037

PATIENT
  Age: 72 Year
  Sex: Female

DRUGS (2)
  1. IBRANCE [Suspect]
     Active Substance: PALBOCICLIB
     Indication: BREAST CANCER FEMALE
     Dosage: 125 MG, CYCLIC, (125 MG QD (EVERYDAY) X 21 DAYS Q (EVERY) 28 DAYS)
     Dates: start: 20191127
  2. IBRANCE [Suspect]
     Active Substance: PALBOCICLIB
     Dosage: 100 MG, CYCLIC (100MG QD (ONCE A DAY) FOR 21 DAYS WITH 7 DAYS OFF)
     Route: 048
     Dates: start: 20200929

REACTIONS (3)
  - Thrombosis [Unknown]
  - Alopecia [Unknown]
  - Fatigue [Unknown]
